FAERS Safety Report 22038606 (Version 2)
Quarter: 2023Q1

REPORT INFORMATION
  Report Type: Spontaneous
  Country: US (occurrence: US)
  Receive Date: 20230227
  Receipt Date: 20230331
  Transmission Date: 20230417
  Serious: No
  Sender: FDA-Public Use
  Company Number: US-ELI_LILLY_AND_COMPANY-US202302012957

PATIENT
  Sex: Male

DRUGS (1)
  1. TRULICITY [Suspect]
     Active Substance: DULAGLUTIDE
     Indication: Product used for unknown indication
     Dosage: 0.75 MG, WEEKLY (1/W) (ONCE PER WEEK)
     Route: 065

REACTIONS (4)
  - Blood glucose increased [Unknown]
  - Illness [Recovered/Resolved]
  - Vomiting [Recovered/Resolved]
  - Nausea [Unknown]
